FAERS Safety Report 6264697-6 (Version None)
Quarter: 2009Q3

REPORT INFORMATION
  Report Type: 
  Country: None (occurrence: None)
  Receive Date: 20090710
  Receipt Date: 20090707
  Transmission Date: 20100115
  Serious: No
  Sender: FDA-Public Use
  Company Number: US-B.I. PHARMACEUTICALS,INC./RIDGEFIELD-2009-BP-08160BP

PATIENT
  Sex: Male
  Weight: 111.4 kg

DRUGS (5)
  1. ZANTAC 75 [Suspect]
     Indication: GASTROOESOPHAGEAL REFLUX DISEASE
     Route: 048
     Dates: start: 19800101
  2. ZANTAC 150 [Suspect]
     Indication: GASTROOESOPHAGEAL REFLUX DISEASE
     Route: 048
  3. XANAX [Concomitant]
     Indication: ANXIETY
  4. VALIUM [Concomitant]
     Indication: ANXIETY
  5. STOOL SOFTENER [Concomitant]
     Indication: CONSTIPATION

REACTIONS (4)
  - ABDOMINAL DISCOMFORT [None]
  - HEART VALVE INCOMPETENCE [None]
  - MEDICATION ERROR [None]
  - OESOPHAGEAL FOOD IMPACTION [None]
